FAERS Safety Report 6399423-3 (Version None)
Quarter: 2009Q4

REPORT INFORMATION
  Report Type: 
  Country: None (occurrence: None)
  Receive Date: 20091014
  Receipt Date: 20090929
  Transmission Date: 20100525
  Serious: Yes (Hospitalization)
  Sender: FDA-Public Use
  Company Number: FR-CELGENEUS-056-20484-09100969

PATIENT
  Age: 74 Year
  Sex: Male
  Weight: 86 kg

DRUGS (10)
  1. INNOHEP [Suspect]
     Indication: ISCHAEMIC STROKE
     Route: 058
     Dates: start: 20000919, end: 20001003
  2. COUMADIN [Suspect]
     Route: 048
     Dates: start: 20000925, end: 20001003
  3. ASPIRIN AND DIPYRIDAMOLE [Suspect]
     Route: 048
     Dates: start: 20000919, end: 20001003
  4. DIAMICRON [Concomitant]
     Indication: DIABETES MELLITUS
     Route: 048
  5. NICOBION [Concomitant]
     Indication: DRUG USE FOR UNKNOWN INDICATION
     Route: 048
  6. CIPRALAN [Concomitant]
     Indication: VENTRICULAR TACHYCARDIA
     Route: 048
  7. VASTEN [Concomitant]
     Route: 048
  8. DEROXAT [Concomitant]
     Indication: DRUG USE FOR UNKNOWN INDICATION
     Route: 048
  9. RANITIDINE HCL [Concomitant]
     Indication: DRUG USE FOR UNKNOWN INDICATION
     Route: 048
  10. NEUROBION [Concomitant]
     Route: 065

REACTIONS (2)
  - CEREBRAL HAEMORRHAGE [None]
  - POTENTIATING DRUG INTERACTION [None]
